FAERS Safety Report 7814247-5 (Version None)
Quarter: 2011Q4

REPORT INFORMATION
  Report Type: 
  Country: None (occurrence: None)
  Receive Date: 20111011
  Receipt Date: 20110928
  Transmission Date: 20120403
  Serious: Yes (Other)
  Sender: FDA-Public Use
  Company Number: 1058050

PATIENT
  Age: 32 Year
  Sex: Male

DRUGS (4)
  1. LITHIUM CITRATE [Suspect]
     Indication: PRODUCT USED FOR UNKNOWN INDICATION
  2. CARBOPLATIN [Suspect]
     Indication: TESTICULAR MALIGNANT TERATOMA STAGE III
     Dosage: AUC 6
  3. ETOPOSIDE [Suspect]
     Indication: TESTICULAR MALIGNANT TERATOMA STAGE III
     Dosage: 240 MG/M 2 MILLIGRAM(S)/SQ, METER ORAL
     Route: 048
  4. ETOPOSIDE [Suspect]
     Indication: TESTICULAR MALIGNANT TERATOMA STAGE III
     Dosage: 120 MG/M2 MILLIGRAM(S)/SQ, METER  INTRAVENOUS (NOT OTHERWISE SPECIFIED)
     Route: 042

REACTIONS (4)
  - RENAL FAILURE ACUTE [None]
  - TUMOUR LYSIS SYNDROME [None]
  - VENA CAVA THROMBOSIS [None]
  - CONTINUOUS HAEMODIAFILTRATION [None]
